FAERS Safety Report 9233580 (Version 1)
Quarter: 2013Q2

REPORT INFORMATION
  Report Type: Spontaneous
  Country: US (occurrence: US)
  Receive Date: 20130416
  Receipt Date: 20130416
  Transmission Date: 20140414
  Serious: No
  Sender: FDA-Public Use
  Company Number: US-BANPHARM-20120374

PATIENT
  Age: 69 Year
  Sex: Male
  Weight: 79.36 kg

DRUGS (3)
  1. NAPROXEN SODIUM 220 MG [Suspect]
     Indication: MUSCULOSKELETAL PAIN
     Dosage: 1DF, QD,
     Route: 048
     Dates: start: 20121105, end: 20121110
  2. VITAMINS [Concomitant]
  3. ANTIHYPERTENSIVES [Concomitant]

REACTIONS (1)
  - Somnolence [Recovered/Resolved]
